FAERS Safety Report 5786197-X (Version None)
Quarter: 2008Q2

REPORT INFORMATION
  Report Type: 
  Country: None (occurrence: None)
  Receive Date: 20080624
  Receipt Date: 20080619
  Transmission Date: 20081010
  Serious: Yes (Other)
  Sender: FDA-Public Use
  Company Number: B0525682A

PATIENT
  Sex: Female

DRUGS (3)
  1. LAMICTAL [Suspect]
     Indication: EPILEPSY
     Dosage: 50MG THREE TIMES PER DAY
     Route: 065
     Dates: start: 20070901
  2. PHENYTOIN [Concomitant]
     Dosage: 25MG FOUR TIMES PER DAY
     Route: 065
  3. CLONAZEPAM [Concomitant]
     Dosage: 500MCG AT NIGHT
     Route: 065

REACTIONS (5)
  - COLITIS [None]
  - DIARRHOEA [None]
  - DIARRHOEA HAEMORRHAGIC [None]
  - ERYTHEMA [None]
  - VOMITING [None]
